FAERS Safety Report 21357159 (Version 1)
Quarter: 2022Q3

REPORT INFORMATION
  Report Type: Spontaneous
  Country: NL (occurrence: NL)
  Receive Date: 20220921
  Receipt Date: 20220921
  Transmission Date: 20221027
  Serious: Yes (Other)
  Sender: FDA-Public Use
  Company Number: NL-LRB-00792286

PATIENT
  Sex: Male
  Weight: 16 kg

DRUGS (4)
  1. FUROSEMIDE [Suspect]
     Active Substance: FUROSEMIDE
     Indication: Fluid retention
     Dosage: 5 MILLIGRAM, TWO TIMES A DAY (5MG 2X DAAGS)
     Route: 065
  2. ENTOCORT [Suspect]
     Active Substance: BUDESONIDE
     Indication: Protein-losing gastroenteropathy
     Dosage: 3 MILLIGRAM, TWO TIMES A DAY(2X DAAGS 1 STUK)
     Route: 065
     Dates: start: 20210212
  3. ASPIRIN [Concomitant]
     Active Substance: ASPIRIN
     Indication: Product used for unknown indication
     Dosage: 80 MILLIGRAM (TABLET, 80 MG (MILLIGRAM)
     Route: 065
  4. KEPPRA [Concomitant]
     Active Substance: LEVETIRACETAM
     Indication: Product used for unknown indication
     Dosage: 100 MILLIGRAM PER MILLILETER (DRANK, 100 MG/ML (MILLIGRAM PER MILLILITER)
     Route: 065

REACTIONS (1)
  - Epilepsy [Recovered/Resolved]
